FAERS Safety Report 19355118 (Version 1)
Quarter: 2021Q2

REPORT INFORMATION
  Report Type: Spontaneous
  Country: US (occurrence: US)
  Receive Date: 20210601
  Receipt Date: 20210601
  Transmission Date: 20210717
  Serious: Yes (Other)
  Sender: FDA-Public Use
  Company Number: None

PATIENT
  Age: 50 Year
  Sex: Male
  Weight: 81 kg

DRUGS (6)
  1. DIALYSIS [Concomitant]
     Active Substance: UNSPECIFIED INGREDIENT
  2. TERRAZYME [Concomitant]
  3. TOBRAMYCIN AND DEXAMETHASONE [Suspect]
     Active Substance: DEXAMETHASONE\TOBRAMYCIN
     Indication: EYE IRRITATION
     Dosage: ?          QUANTITY:1 DROP(S);?
     Route: 047
  4. LIFE LONG VITALITY SUPPLEMENTS [Concomitant]
  5. ZENDOCRINE [Concomitant]
  6. SLEEP APNEA MACHINE [Concomitant]

REACTIONS (3)
  - Photophobia [None]
  - Dialysis [None]
  - Blindness [None]

NARRATIVE: CASE EVENT DATE: 20210429
